FAERS Safety Report 8589766 (Version 3)
Quarter: 2012Q4

REPORT INFORMATION
  Report Type: 
  Country: US (occurrence: US)
  Receive Date: 20120601
  Receipt Date: 20121017
  Transmission Date: 20130627
  Serious: Yes (Hospitalization, Other)
  Sender: FDA-Public Use
  Company Number: US-VERTEX PHARMACEUTICAL INC.-AE-2012-007603

PATIENT
  Sex: Male
  Weight: 91 kg

DRUGS (5)
  1. VX-950 [Suspect]
     Indication: HEPATITIS C
     Dosage: 750 mg, tid
     Route: 048
     Dates: start: 20110701, end: 20111001
  2. VX-950 [Suspect]
     Dosage: UNK
     Route: 048
  3. RIBAPAK [Suspect]
     Indication: HEPATITIS C
     Dosage: 600 mg in AM, 400 mg PM
     Route: 048
     Dates: end: 20120701
  4. PEGASYS [Suspect]
     Indication: HEPATITIS C
     Dosage: 180 ?g, UNK
     Route: 058
     Dates: end: 20120701
  5. PEGASYS [Suspect]
     Dosage: UNK

REACTIONS (8)
  - Wrist fracture [Unknown]
  - Anaemia [Not Recovered/Not Resolved]
  - Liver function test abnormal [Not Recovered/Not Resolved]
  - Asthenia [Not Recovered/Not Resolved]
  - Fatigue [Not Recovered/Not Resolved]
  - Drug ineffective [Unknown]
  - Diarrhoea [Recovered/Resolved]
  - Haemorrhoids [Recovered/Resolved]
